FAERS Safety Report 21308557 (Version 2)
Quarter: 2022Q3

REPORT INFORMATION
  Report Type: Spontaneous
  Country: US (occurrence: US)
  Receive Date: 20220908
  Receipt Date: 20220921
  Transmission Date: 20221026
  Serious: Yes (Hospitalization)
  Sender: FDA-Public Use
  Company Number: US-TEVA-2022-US-2070244

PATIENT
  Age: 51 Year
  Sex: Female

DRUGS (2)
  1. PROPOFOL [Suspect]
     Active Substance: PROPOFOL
     Indication: Maintenance of anaesthesia
     Dosage: TOTAL DOSE WAS 180MG
     Route: 042
  2. BENZOCAINE [Suspect]
     Active Substance: BENZOCAINE
     Indication: Anaesthesia
     Dosage: SPRAY TO THE OROPHARYNX, 0.5 ML
     Route: 061

REACTIONS (2)
  - Atelectasis [Recovering/Resolving]
  - Hypoxia [Recovering/Resolving]
